FAERS Safety Report 23164991 (Version 1)
Quarter: 2023Q4

REPORT INFORMATION
  Report Type: Spontaneous
  Country: US (occurrence: None)
  Receive Date: 20231108
  Receipt Date: 20231108
  Transmission Date: 20240110
  Serious: Yes (Hospitalization)
  Sender: FDA-Public Use
  Company Number: None

PATIENT
  Age: 67 Year
  Sex: Female
  Weight: 93.9 kg

DRUGS (5)
  1. LENVIMA [Suspect]
     Active Substance: LENVATINIB
     Indication: Ovarian cancer recurrent
     Dosage: FREQUENCY : DAILY;?
     Route: 048
     Dates: start: 20231019, end: 20231106
  2. KEYTRUDA [Suspect]
     Active Substance: PEMBROLIZUMAB
     Indication: Ovarian cancer recurrent
     Dosage: OTHER FREQUENCY : EVERY 3 WEEKS;?
     Route: 042
     Dates: start: 20231019, end: 20231102
  3. TAXOL [Suspect]
     Active Substance: PACLITAXEL
     Dates: start: 20231019, end: 20231019
  4. TAXOL [Concomitant]
     Active Substance: PACLITAXEL
     Dates: start: 20231026, end: 20231026
  5. TAXOL [Concomitant]
     Active Substance: PACLITAXEL
     Dates: start: 20231102, end: 20231102

REACTIONS (3)
  - Diarrhoea [None]
  - C-reactive protein increased [None]
  - Red blood cell sedimentation rate increased [None]

NARRATIVE: CASE EVENT DATE: 20231107
